FAERS Safety Report 8557889-4 (Version None)
Quarter: 2012Q3

REPORT INFORMATION
  Report Type: 
  Country: None (occurrence: None)
  Receive Date: 20120801
  Receipt Date: 20120726
  Transmission Date: 20120928
  Serious: Yes (Other)
  Sender: FDA-Public Use
  Company Number: US-AMGEN-USASP2012046844

PATIENT
  Sex: Female

DRUGS (4)
  1. EPOGEN [Suspect]
     Indication: NEPHROGENIC ANAEMIA
     Dosage: UNK
  2. TOPROL-XL [Concomitant]
     Dosage: UNK
  3. LISINOPRIL [Concomitant]
     Dosage: UNK
  4. HEPARIN [Concomitant]
     Dosage: UNK

REACTIONS (4)
  - INTRAOCULAR PRESSURE INCREASED [None]
  - METAMORPHOPSIA [None]
  - BLINDNESS TRANSIENT [None]
  - BLOOD PRESSURE INCREASED [None]
